FAERS Safety Report 6100968-1 (Version None)
Quarter: 2009Q1

REPORT INFORMATION
  Report Type: 
  Country: None (occurrence: None)
  Receive Date: 20090220
  Receipt Date: 20090205
  Transmission Date: 20090719
  Serious: No
  Sender: FDA-Public Use
  Company Number: B0559292A

PATIENT
  Sex: Female

DRUGS (4)
  1. ALBENDAZOLE (FORMULATION UNKNOWN) (GENERIC) (ALBENDAZOLE) [Suspect]
     Indication: HELMINTHIC INFECTION
     Dosage: SINGLE DOSE
  2. TETANUS  TOXOID (FORMULATION UNKNOWN)  (TETANUS TOXOID) [Suspect]
  3. IRON SUPPLEMENTS (FORMULATION UNKNOWN) (IRON SUPPLEMENTS) [Suspect]
  4. PYRIMETHAMINE+SULFADOXINE (FORMULATION UNKNOWN) (PYRIMETHAMINE+SULFADO [Suspect]

REACTIONS (2)
  - ABORTION [None]
  - DRUG EXPOSURE DURING PREGNANCY [None]
